FAERS Safety Report 23154940 (Version 1)
Quarter: 2023Q4

REPORT INFORMATION
  Report Type: Spontaneous
  Country: US (occurrence: US)
  Receive Date: 20231107
  Receipt Date: 20231107
  Transmission Date: 20240110
  Serious: Yes (Other)
  Sender: FDA-Public Use
  Company Number: US-GSK-US2023GSK153381

PATIENT

DRUGS (7)
  1. PROPAFENONE [Suspect]
     Active Substance: PROPAFENONE
     Indication: Atrial fibrillation
     Dosage: SINGLE DOSE 600 MG
     Route: 048
  2. DILTIAZEM [Suspect]
     Active Substance: DILTIAZEM
     Indication: Heart rate
     Dosage: 10 MG
     Route: 042
  3. SERTRALINE [Suspect]
     Active Substance: SERTRALINE HYDROCHLORIDE
     Indication: Depression
     Dosage: UNK
  4. METOPROLOL SUCCINATE [Suspect]
     Active Substance: METOPROLOL SUCCINATE
     Indication: Product used for unknown indication
     Dosage: 50 MG
     Route: 048
  5. RIVAROXABAN [Concomitant]
     Active Substance: RIVAROXABAN
     Indication: Product used for unknown indication
     Dosage: UNK
  6. FUROSEMIDE [Concomitant]
     Active Substance: FUROSEMIDE
     Indication: Dyspnoea
     Dosage: 40 MG
     Route: 042
  7. FUROSEMIDE [Concomitant]
     Active Substance: FUROSEMIDE
     Indication: Hypervolaemia

REACTIONS (12)
  - Atrial flutter [Unknown]
  - Toxicity to various agents [Unknown]
  - Haemodynamic instability [Recovered/Resolved]
  - Headache [Recovering/Resolving]
  - Nausea [Recovering/Resolving]
  - Mental status changes [Recovering/Resolving]
  - Atrial fibrillation [Recovering/Resolving]
  - Ischaemia [Unknown]
  - Cardiogenic shock [Unknown]
  - Tachycardia [Unknown]
  - Drug interaction [Unknown]
  - Drug ineffective [Unknown]
